FAERS Safety Report 4946316-1 (Version None)
Quarter: 2006Q1

REPORT INFORMATION
  Report Type: 
  Country: None (occurrence: None)
  Receive Date: 20060316
  Receipt Date: 20060316
  Transmission Date: 20060701
  Serious: No
  Sender: FDA-Public Use
  Company Number: None

PATIENT
  Age: 41 Year
  Sex: Male
  Weight: 92.9874 kg

DRUGS (2)
  1. LEVAQUIN [Suspect]
     Indication: PROSTATITIS
     Dosage: 750 MG   DAILY  PO
     Route: 048
     Dates: start: 20060101, end: 20060201
  2. CIPRO [Suspect]
     Dosage: 500 MG   TWICE DAILY  PO
     Route: 048
     Dates: start: 20060201, end: 20060301

REACTIONS (10)
  - ANXIETY [None]
  - ASTHENIA [None]
  - BLINDNESS [None]
  - CONFUSIONAL STATE [None]
  - HYPOAESTHESIA [None]
  - MUSCLE TWITCHING [None]
  - MYALGIA [None]
  - PARAESTHESIA [None]
  - TENDON DISORDER [None]
  - VISUAL DISTURBANCE [None]
